FAERS Safety Report 5873207-4 (Version None)
Quarter: 2008Q3

REPORT INFORMATION
  Report Type: 
  Country: None (occurrence: None)
  Receive Date: 20080905
  Receipt Date: 20080905
  Transmission Date: 20090109
  Serious: Yes (Hospitalization)
  Sender: FDA-Public Use
  Company Number: None

PATIENT
  Sex: Female
  Weight: 61.1449 kg

DRUGS (2)
  1. SORAFENIB  400 MG PER DAY [Suspect]
     Indication: RENAL CANCER
     Dosage: 400 MG PO DAILY
     Route: 048
     Dates: start: 20080625, end: 20080808
  2. RAD001  35MG WEEKLY [Suspect]
     Indication: RENAL CANCER
     Dosage: RAD001 35MG PO WEEKLY
     Route: 048
     Dates: start: 20080625, end: 20080723

REACTIONS (4)
  - MALIGNANT NEOPLASM PROGRESSION [None]
  - METASTASES TO LIVER [None]
  - METASTASES TO LUNG [None]
  - SOMNOLENCE [None]
